FAERS Safety Report 10505766 (Version 1)
Quarter: 2014Q4

REPORT INFORMATION
  Report Type: Spontaneous
  Country: DE (occurrence: DE)
  Receive Date: 20141008
  Receipt Date: 20141008
  Transmission Date: 20150528
  Serious: Yes (Congenital Anomaly, Other)
  Sender: FDA-Public Use
  Company Number: GXKR2014DE003753

PATIENT

DRUGS (9)
  1. FOLSAEURE [Concomitant]
     Active Substance: FOLIC ACID
     Indication: PROPHYLAXIS OF NEURAL TUBE DEFECT
     Dosage: 0.4 [MG/D ]
     Route: 064
     Dates: start: 20130703, end: 20140315
  2. ZYPREXA [Suspect]
     Active Substance: OLANZAPINE
     Indication: ANXIETY DISORDER
     Dosage: 10 [MG/D ]
     Route: 064
     Dates: start: 20140124, end: 20140315
  3. RISPERDAL [Concomitant]
     Active Substance: RISPERIDONE
     Indication: ANXIETY DISORDER
     Dosage: 2 [MG/D ]/ GW 21.2 TO 28.3 AND 29.1 TO 33.2
     Route: 064
     Dates: start: 20131031, end: 20140123
  4. AMITRIPTYLIN [Concomitant]
     Active Substance: AMITRIPTYLINE
     Indication: ANXIETY DISORDER
     Dosage: DOSE NOT EXACTLY KNOWN
     Route: 064
     Dates: start: 20131119, end: 20131220
  5. DIAZEPAM. [Concomitant]
     Active Substance: DIAZEPAM
     Indication: ANXIETY DISORDER
     Dosage: 10 [MG/D ]
     Route: 064
     Dates: start: 20131122, end: 20131224
  6. CITALOPRAM [Concomitant]
     Active Substance: CITALOPRAM HYDROBROMIDE
     Indication: ANXIETY DISORDER
     Dosage: 30 [MG/D ]/ STARTED WITH 20 MG/D, FROM GW 30 TO 33.2 30 MG/D
     Route: 064
     Dates: start: 20131220, end: 20140123
  7. PAROXETINE [Suspect]
     Active Substance: PAROXETINE\PAROXETINE HYDROCHLORIDE
     Indication: ANXIETY DISORDER
     Dosage: 20 [MG/D ]/ GW 0-5 20 MG/D, STARTED AGAIN GW 12.5
     Route: 064
     Dates: start: 20130604, end: 20131118
  8. TREVILOR RETARD [Suspect]
     Active Substance: VENLAFAXINE HYDROCHLORIDE
     Indication: ANXIETY DISORDER
     Dosage: 450 [MG/D ]/ NOT KNOWN IF DOSE WAS SEPERATED
     Route: 064
     Dates: start: 20140124, end: 20140315
  9. SEROQUEL [Concomitant]
     Active Substance: QUETIAPINE FUMARATE
     Indication: ANXIETY DISORDER
     Dosage: 75 [MG/D ]
     Route: 064
     Dates: start: 20131220, end: 20131224

REACTIONS (5)
  - Restlessness [Recovered/Resolved]
  - Haemangioma congenital [Unknown]
  - Agitation neonatal [Recovered/Resolved]
  - Drug withdrawal syndrome neonatal [Recovered/Resolved]
  - Oxygen saturation abnormal [Recovered/Resolved]
